FAERS Safety Report 4413955-6 (Version None)
Quarter: 2004Q3

REPORT INFORMATION
  Report Type: 
  Country: None (occurrence: None)
  Receive Date: 20040729
  Receipt Date: 20040707
  Transmission Date: 20050211
  Serious: Yes (Hospitalization)
  Sender: FDA-Public Use
  Company Number: 2004-FF-00405FF

PATIENT
  Age: 63 Year
  Sex: Female

DRUGS (3)
  1. MICARDIS 40 MG (TELMISARTAN) (TA) [Suspect]
     Indication: HYPERTENSION
     Dosage: 40 MG (40 MG) PO   SEVERAL YEARS
     Route: 048
  2. PROTHIADEN [Concomitant]
  3. NUCTALON (ESTAZOLAM) [Concomitant]

REACTIONS (2)
  - BLOOD CREATINE PHOSPHOKINASE INCREASED [None]
  - FALL [None]
